FAERS Safety Report 4865549-6 (Version None)
Quarter: 2005Q4

REPORT INFORMATION
  Report Type: 
  Country: None (occurrence: None)
  Receive Date: 20051220
  Receipt Date: 20051208
  Transmission Date: 20060501
  Serious: Yes (Death, Hospitalization, Other)
  Sender: FDA-Public Use
  Company Number: CZ200512000472

PATIENT
  Age: 36 Year
  Sex: Female

DRUGS (3)
  1. ZYPREXA [Suspect]
     Indication: BIPOLAR DISORDER
     Dosage: 10 MG DAILY 1/D ORAL
     Route: 048
     Dates: start: 20041229
  2. SOMNOSAN (ZOPICLONE) [Concomitant]
  3. MARVELON (DESOGESTREL, ETHINYLESTRADIOL) [Concomitant]

REACTIONS (19)
  - ASTHENIA [None]
  - BRAIN DEATH [None]
  - CARDIO-RESPIRATORY ARREST [None]
  - CEREBRAL ISCHAEMIA [None]
  - COMA [None]
  - ELECTROCARDIOGRAM QT PROLONGED [None]
  - ELECTROCARDIOGRAM T WAVE INVERSION [None]
  - FALL [None]
  - GAZE PALSY [None]
  - HAEMODYNAMIC INSTABILITY [None]
  - HYPERHIDROSIS [None]
  - HYPOTHERMIA [None]
  - LOSS OF CONSCIOUSNESS [None]
  - MINERAL METABOLISM DISORDER [None]
  - MYDRIASIS [None]
  - POLYURIA [None]
  - TACHYCARDIA [None]
  - TROPONIN T INCREASED [None]
  - WEIGHT INCREASED [None]
